FAERS Safety Report 24992175 (Version 1)
Quarter: 2025Q1

REPORT INFORMATION
  Report Type: Spontaneous
  Country: CA (occurrence: CA)
  Receive Date: 20250220
  Receipt Date: 20250220
  Transmission Date: 20250408
  Serious: Yes (Other)
  Sender: PFIZER
  Company Number: CA-PFIZER INC-202200944192

PATIENT
  Age: 60 Year
  Sex: Female

DRUGS (2)
  1. XELJANZ [Suspect]
     Active Substance: TOFACITINIB CITRATE
     Indication: Colitis ulcerative
     Dosage: 10 MG, 2X/DAY (X 8 WEEKS)
     Route: 048
     Dates: start: 20220407, end: 202206
  2. XELJANZ [Suspect]
     Active Substance: TOFACITINIB CITRATE
     Dosage: 5 MG, 2X/DAY
     Route: 048
     Dates: start: 202206

REACTIONS (7)
  - Increased tendency to bruise [Not Recovered/Not Resolved]
  - Periarthritis [Not Recovered/Not Resolved]
  - Myalgia [Recovered/Resolved]
  - Middle insomnia [Recovered/Resolved]
  - Rash [Unknown]
  - Dermatitis atopic [Unknown]
  - Urticaria [Unknown]

NARRATIVE: CASE EVENT DATE: 20220101
